FAERS Safety Report 19005473 (Version 11)
Quarter: 2022Q1

REPORT INFORMATION
  Report Type: Report from Study
  Country: US (occurrence: US)
  Receive Date: 20210313
  Receipt Date: 20220114
  Transmission Date: 20220423
  Serious: Yes (Other)
  Sender: FDA-Public Use
  Company Number: NVSC2021US053730

PATIENT
  Sex: Male

DRUGS (2)
  1. ENTRESTO [Suspect]
     Active Substance: SACUBITRIL\VALSARTAN
     Indication: Product used for unknown indication
     Dosage: UNK
     Route: 065
  2. UNSPECIFIED INGREDIENT [Concomitant]
     Active Substance: UNSPECIFIED INGREDIENT
     Indication: Product used for unknown indication
     Dosage: UNK
     Route: 065

REACTIONS (16)
  - Neoplasm malignant [Recovered/Resolved]
  - Neoplasm malignant [Unknown]
  - Renal impairment [Recovering/Resolving]
  - Nasopharyngitis [Unknown]
  - Dysstasia [Recovering/Resolving]
  - Ageusia [Recovering/Resolving]
  - Renal disorder [Recovering/Resolving]
  - Muscular weakness [Unknown]
  - Dysuria [Recovering/Resolving]
  - Weight fluctuation [Unknown]
  - Dyspnoea [Unknown]
  - Pain [Unknown]
  - Asthenia [Recovering/Resolving]
  - Dizziness [Recovering/Resolving]
  - Weight decreased [Recovering/Resolving]
  - Malaise [Unknown]

NARRATIVE: CASE EVENT DATE: 20200101
